FAERS Safety Report 10764481 (Version 1)
Quarter: 2015Q1

REPORT INFORMATION
  Report Type: Spontaneous
  Country: DE (occurrence: DE)
  Receive Date: 20150205
  Receipt Date: 20150205
  Transmission Date: 20150721
  Serious: Yes (Death, Life-Threatening, Hospitalization, Other)
  Sender: FDA-Public Use
  Company Number: DE-ROCHE-1529523

PATIENT
  Age: 60 Year
  Sex: Female

DRUGS (2)
  1. SULTANOL [Concomitant]
     Active Substance: ALBUTEROL SULFATE
     Route: 065
  2. AVASTIN [Suspect]
     Active Substance: BEVACIZUMAB
     Indication: OVARIAN CANCER
     Route: 042
     Dates: start: 201404, end: 20141112

REACTIONS (9)
  - Abdominal abscess [Not Recovered/Not Resolved]
  - Generalised oedema [Unknown]
  - Bladder dysfunction [Unknown]
  - Abdominal neoplasm [Unknown]
  - Peritonitis [Not Recovered/Not Resolved]
  - Cardiac failure [Fatal]
  - Gastrointestinal anastomotic leak [Not Recovered/Not Resolved]
  - Nausea [Unknown]
  - Ascites [Unknown]

NARRATIVE: CASE EVENT DATE: 201412
